FAERS Safety Report 17694340 (Version 1)
Quarter: 2020Q2

REPORT INFORMATION
  Report Type: Spontaneous
  Country: DE (occurrence: DE)
  Receive Date: 20200422
  Receipt Date: 20200422
  Transmission Date: 20200714
  Serious: Yes (Other)
  Sender: FDA-Public Use
  Company Number: DE-PFIZER INC-2020158078

PATIENT
  Sex: Female

DRUGS (1)
  1. PREGABALINE PFIZER [Suspect]
     Active Substance: PREGABALIN
     Indication: ANXIETY
     Dosage: UNK
     Dates: start: 2019

REACTIONS (22)
  - Epilepsy [Unknown]
  - Diarrhoea [Unknown]
  - Visual impairment [Unknown]
  - Rhinorrhoea [Unknown]
  - Arthralgia [Unknown]
  - Hyperhidrosis [Unknown]
  - Weight increased [Unknown]
  - Headache [Unknown]
  - Panic attack [Unknown]
  - Asthenia [Unknown]
  - Dysphagia [Unknown]
  - Therapeutic product effect decreased [Unknown]
  - Thinking abnormal [Unknown]
  - Palpitations [Unknown]
  - Sexual dysfunction [Unknown]
  - Feeling cold [Unknown]
  - Nausea [Unknown]
  - Cough [Unknown]
  - Depression [Unknown]
  - Dyspnoea [Unknown]
  - Irritability [Unknown]
  - Paraesthesia [Unknown]
